FAERS Safety Report 21039617 (Version 1)
Quarter: 2022Q3

REPORT INFORMATION
  Report Type: Spontaneous
  Country: CN (occurrence: CN)
  Receive Date: 20220704
  Receipt Date: 20220704
  Transmission Date: 20221026
  Serious: Yes (Hospitalization, Other)
  Sender: FDA-Public Use
  Company Number: CN-SLATE RUN PHARMACEUTICALS-22CN001173

PATIENT

DRUGS (25)
  1. POTASSIUM CHLORIDE [Suspect]
     Active Substance: POTASSIUM CHLORIDE
     Indication: Maternal exposure during pregnancy
     Dosage: 0.5 GRAM, BID
  2. FUROSEMIDE [Concomitant]
     Active Substance: FUROSEMIDE
     Indication: Maternal exposure during pregnancy
     Dosage: 20 MILLIGRAM, QD
  3. PREDNISONE [Concomitant]
     Active Substance: PREDNISONE
     Indication: Maternal exposure during pregnancy
     Dosage: 50 MILLIGRAM
  4. PREDNISONE [Concomitant]
     Active Substance: PREDNISONE
     Dosage: 10 MILLIGRAM
  5. HYDROXYCHLOROQUINE [Concomitant]
     Active Substance: HYDROXYCHLOROQUINE
     Indication: Maternal exposure during pregnancy
     Dosage: 200 MILLIGRAM
  6. CYCLOSPORINE [Concomitant]
     Active Substance: CYCLOSPORINE
     Indication: Maternal exposure during pregnancy
     Dosage: 100 MILLIGRAM
  7. AMBRISENTAN [Concomitant]
     Active Substance: AMBRISENTAN
     Indication: Maternal exposure during pregnancy
     Dosage: 10 MILLIGRAM
  8. SILDENAFIL [Concomitant]
     Active Substance: SILDENAFIL
     Indication: Maternal exposure during pregnancy
     Dosage: 75 MILLIGRAM
  9. SILDENAFIL [Concomitant]
     Active Substance: SILDENAFIL
     Dosage: 50 MILLIGRAM
  10. REMODULIN [Concomitant]
     Active Substance: TREPROSTINIL
     Indication: Maternal exposure during pregnancy
     Dosage: 1.0-2.0 NG/KG.MIN
  11. REMODULIN [Concomitant]
     Active Substance: TREPROSTINIL
     Dosage: 1.0-1.2 NG/KG.MIN
  12. REMODULIN [Concomitant]
     Active Substance: TREPROSTINIL
     Dosage: 0.45-0.9 NG/KG.MIN
  13. WARFARIN [Concomitant]
     Active Substance: WARFARIN
     Indication: Maternal exposure during pregnancy
     Dosage: 1.5 MILLIGRAM
  14. ASPIRIN [Concomitant]
     Active Substance: ASPIRIN
     Indication: Maternal exposure during pregnancy
     Dosage: 100 MILLIGRAM
  15. UNSPECIFIED INGREDIENT [Concomitant]
     Active Substance: UNSPECIFIED INGREDIENT
     Indication: Maternal exposure during pregnancy
     Dosage: 4000 INTERNATIONAL UNIT
  16. TAMIFLU [Concomitant]
     Active Substance: OSELTAMIVIR PHOSPHATE
     Indication: Maternal exposure during pregnancy
  17. CEFACLOR [Concomitant]
     Active Substance: CEFACLOR
     Indication: Maternal exposure during pregnancy
  18. OXYGEN [Concomitant]
     Active Substance: OXYGEN
     Indication: Maternal exposure during pregnancy
     Dosage: 3 L/MIN VIA A MASK (MOTHER)
  19. OXYGEN [Concomitant]
     Active Substance: OXYGEN
  20. LIDOCAINE [Concomitant]
     Active Substance: LIDOCAINE
     Indication: Maternal exposure during pregnancy
     Dosage: MIXTURE OF 0.5% ROPIVACAINE AND 1% LIDOCAINE (10 ML IN TOTAL) TO MOTHER
  21. LIDOCAINE [Concomitant]
     Active Substance: LIDOCAINE
     Dosage: 3 MILLILITRE OF 2% GIVEN TO MOTHER AS A TEST DOSE
  22. ROPIVACAINE [Concomitant]
     Active Substance: ROPIVACAINE
     Indication: Maternal exposure during pregnancy
     Dosage: MIXTURE OF 0.5% ROPIVACAINE AND 1% LIDOCAINE (10 ML IN TOTAL) TO MOTHER
  23. EPINEPHRINE [Concomitant]
     Active Substance: EPINEPHRINE
     Indication: Maternal exposure during pregnancy
     Dosage: 0.01-0.02 MICROGRAM/KG/MIN
  24. NOREPINEPHRINE [Concomitant]
     Active Substance: NOREPINEPHRINE
     Indication: Maternal exposure during pregnancy
     Dosage: 0.01-0.05 MICROGRAM/KG/MIN
  25. SODIUM CHLORIDE [Concomitant]
     Active Substance: SODIUM CHLORIDE
     Indication: Maternal exposure during pregnancy
     Dosage: 300 MILLILITRE

REACTIONS (4)
  - Premature baby [Recovered/Resolved]
  - Foetal growth restriction [Recovered/Resolved]
  - Apgar score low [Recovered/Resolved]
  - Foetal exposure during pregnancy [Recovered/Resolved]
